FAERS Safety Report 6683992-X (Version None)
Quarter: 2010Q2

REPORT INFORMATION
  Report Type: 
  Country: None (occurrence: None)
  Receive Date: 20100401
  Receipt Date: 20090716
  Transmission Date: 20101027
  Serious: Yes (Other)
  Sender: FDA-Public Use
  Company Number: 202420USA

PATIENT
  Age: 25 Year
  Sex: Male

DRUGS (2)
  1. IFOSFAMIDE AND MESNA [Suspect]
     Indication: RHABDOMYOSARCOMA
     Dosage: (1800 MG/M2)
     Dates: start: 20090608, end: 20090612
  2. IFOSFAMIDE AND MESNA [Suspect]

REACTIONS (1)
  - ENCEPHALOPATHY [None]
